FAERS Safety Report 9702720 (Version 2)
Quarter: 2013Q4

REPORT INFORMATION
  Report Type: Spontaneous
  Country: US (occurrence: US)
  Receive Date: 20131121
  Receipt Date: 20131213
  Transmission Date: 20140711
  Serious: Yes (Death, Hospitalization, Other)
  Sender: FDA-Public Use
  Company Number: US-B.I. PHARMACEUTICALS,INC./RIDGEFIELD-2013-BI-38231BP

PATIENT
  Age: 76 Year
  Sex: Female

DRUGS (1)
  1. PRADAXA [Suspect]
     Indication: ATRIAL FIBRILLATION
     Dosage: 300 MG
     Route: 048
     Dates: start: 201108, end: 201303

REACTIONS (8)
  - Respiratory failure [Fatal]
  - Shock [Fatal]
  - Gastrointestinal necrosis [Fatal]
  - Atrial fibrillation [Fatal]
  - Intestinal ischaemia [Fatal]
  - Renal failure acute [Unknown]
  - Haemorrhage [Unknown]
  - Anaemia [Unknown]
